FAERS Safety Report 8326748-4 (Version None)
Quarter: 2012Q2

REPORT INFORMATION
  Report Type: 
  Country: None (occurrence: None)
  Receive Date: 20120501
  Receipt Date: 20120427
  Transmission Date: 20120825
  Serious: Yes (Life-Threatening)
  Sender: FDA-Public Use
  Company Number: CHPA2012GB009466

PATIENT
  Age: 54 Year
  Sex: Male
  Weight: 128.1 kg

DRUGS (8)
  1. SENNA [Suspect]
     Dosage: 7.5 MG, QD
     Route: 048
  2. DESLORATADINE [Suspect]
     Dosage: 5 MG, QD
     Route: 048
  3. AMLODIPINE [Suspect]
     Dosage: 10 MG, QD
     Route: 048
  4. ACETAMINOPHEN [Suspect]
     Dosage: 1 G, QID
     Route: 048
  5. LITHIUM CARBONATE [Suspect]
     Dosage: 400 MG, QD
     Route: 048
  6. CODEINE PHOSPHATE [Suspect]
     Dosage: 60 MG, QID
     Route: 048
  7. QUETIAPINE [Suspect]
     Dosage: 300 MG, QD
     Route: 048
  8. DABIGATRAN ETEXILATE [Suspect]
     Indication: THROMBOSIS PROPHYLAXIS
     Dosage: 220 MG, QD
     Route: 048
     Dates: start: 20120327, end: 20120422

REACTIONS (1)
  - DEEP VEIN THROMBOSIS [None]
